FAERS Safety Report 24118428 (Version 2)
Quarter: 2024Q3

REPORT INFORMATION
  Report Type: Spontaneous
  Country: AT (occurrence: AT)
  Receive Date: 20240722
  Receipt Date: 20240927
  Transmission Date: 20241017
  Serious: Yes (Hospitalization, Other)
  Sender: CELLTRION
  Company Number: AT-CELLTRION INC.-2021AT006484

PATIENT

DRUGS (95)
  1. TRASTUZUMAB [Suspect]
     Active Substance: TRASTUZUMAB
     Indication: HER2 positive breast cancer
     Dosage: 624 MG, EVERY 1 DAY
     Route: 042
     Dates: start: 20170224
  2. TRASTUZUMAB [Suspect]
     Active Substance: TRASTUZUMAB
     Dosage: UNK
     Route: 058
     Dates: start: 20200814, end: 20201015
  3. HERCEPTIN [Suspect]
     Active Substance: TRASTUZUMAB
     Indication: Breast cancer metastatic
     Dosage: 624 MG, QD (MOST RECENT DOSE PRIOR TO THE EVENTS: 10/AUG/2017)
     Route: 042
     Dates: start: 20170224, end: 20170224
  4. HERCEPTIN [Suspect]
     Active Substance: TRASTUZUMAB
     Dosage: 462 MG, Q3 WEEKS
     Route: 042
     Dates: start: 20170810, end: 20190213
  5. HERCEPTIN [Suspect]
     Active Substance: TRASTUZUMAB
     Dosage: 432 MG, QD
     Route: 042
     Dates: start: 20170519, end: 20170519
  6. HERCEPTIN [Suspect]
     Active Substance: TRASTUZUMAB
     Dosage: 414 MG, Q3 WEEKS
     Route: 042
     Dates: start: 20170609, end: 20170630
  7. HERCEPTIN [Suspect]
     Active Substance: TRASTUZUMAB
     Dosage: 468 MG, QD
     Route: 042
     Dates: start: 20170720, end: 20170720
  8. HERCEPTIN [Suspect]
     Active Substance: TRASTUZUMAB
     Dosage: 390 MG, EVERY 17 DAYS
     Route: 042
     Dates: start: 20170410, end: 20170427
  9. HERCEPTIN [Suspect]
     Active Substance: TRASTUZUMAB
     Dosage: 468 MG/KG, QD
     Route: 042
     Dates: start: 20170317, end: 20170317
  10. HERCEPTIN [Suspect]
     Active Substance: TRASTUZUMAB
     Dosage: 408 MG, Q3 WEEKS
     Route: 042
     Dates: start: 20210317, end: 20210428
  11. HERCEPTIN [Suspect]
     Active Substance: TRASTUZUMAB
     Dosage: 560 MG, Q3 WEEKS
     Route: 042
     Dates: start: 20201230, end: 20210210
  12. HERCEPTIN [Suspect]
     Active Substance: TRASTUZUMAB
     Dosage: 540 MG, Q3 WEEKS
     Route: 042
     Dates: start: 20200422, end: 20200615
  13. KADCYLA [Suspect]
     Active Substance: ADO-TRASTUZUMAB EMTANSINE
     Indication: Breast cancer metastatic
     Dosage: 270 MG, EVERY 3 WEEKS; MOST RECENT DOSE PRIOR TO THE EVENT: 09/SEP/2019
     Route: 042
     Dates: start: 20190306, end: 20190909
  14. FASLODEX [Suspect]
     Active Substance: FULVESTRANT
     Indication: Breast cancer metastatic
     Dosage: 500 MG PER 0.5 WEEK; MOST RECENT DOSE PRIOR TO THE EVENT: 15/NOV/2017
     Route: 058
     Dates: start: 20171002, end: 20171115
  15. FASLODEX [Suspect]
     Active Substance: FULVESTRANT
     Dosage: 500 MG, EVERY 1 MONTH
     Route: 058
     Dates: start: 20171116, end: 20191001
  16. XELODA [Suspect]
     Active Substance: CAPECITABINE
     Indication: Breast cancer metastatic
     Dosage: 3500 MG, EVERY 1 DAY; MOST RECENT DOSE PRIOR TO THE EVENT: 07/JAN/2020 / MOST RECENT DOSE PRIOR TO T
     Route: 048
     Dates: start: 20191002, end: 20200107
  17. XELODA [Suspect]
     Active Substance: CAPECITABINE
     Dosage: 3000 MG, QD
     Route: 048
     Dates: start: 20200108, end: 20200421
  18. XELODA [Suspect]
     Active Substance: CAPECITABINE
     Dosage: OTHER DAILY FOR 2 WEEKS THEN PAUSE FOR 1 WEEK
     Route: 048
     Dates: start: 20201230, end: 20210203
  19. XELODA [Suspect]
     Active Substance: CAPECITABINE
     Dosage: 3500 MG
     Route: 048
     Dates: start: 20210210, end: 20210224
  20. TAXOTERE [Suspect]
     Active Substance: DOCETAXEL
     Indication: Breast cancer metastatic
     Dosage: 190 MG EVERY 3 WEEKS; MOST RECENT DOSE PRIOR TO THE EVENT: 17/MAR/2017 / MOST RECENT DOSE PRIOR TO T
     Route: 042
     Dates: start: 20170224, end: 20170317
  21. TAXOTERE [Suspect]
     Active Substance: DOCETAXEL
     Dosage: 180 MG, EVERY 3 WEEKS
     Route: 042
     Dates: start: 20170609, end: 20170630
  22. TAXOTERE [Suspect]
     Active Substance: DOCETAXEL
     Dosage: 134.25 MG, EVERY 3 WEEKS
     Route: 042
     Dates: start: 20210317, end: 20210428
  23. TAXOTERE [Suspect]
     Active Substance: DOCETAXEL
     Dosage: 175 MG, EVERY 17 DAYS
     Route: 042
     Dates: start: 20170410, end: 20170427
  24. TAXOTERE [Suspect]
     Active Substance: DOCETAXEL
     Dosage: 183 MG, QD
     Route: 042
     Dates: start: 20170519, end: 20170519
  25. NAVELBINE [Suspect]
     Active Substance: VINORELBINE TARTRATE
     Indication: Breast cancer metastatic
     Dosage: 45 MG EVERY 3 WEEKS; MOST RECENT DOSE PRIOR TO THE EVENT: 22/JUL/2020
     Route: 042
     Dates: start: 20200422, end: 20200722
  26. NAVELBINE [Suspect]
     Active Substance: VINORELBINE TARTRATE
     Dosage: 45 MG EVERY 3 WEEKS; MOST RECENT DOSE PRIOR TO THE EVENT: 22/JUL/2020
     Route: 042
     Dates: start: 20200422, end: 20200422
  27. TYKERB [Suspect]
     Active Substance: LAPATINIB DITOSYLATE
     Indication: Breast cancer metastatic
     Dosage: 1250 MG, EVERY 1 DAY; MOST RECENT DOSE PRIOR TO THE EVENT: 07/JAN/2020
     Route: 048
     Dates: start: 20191002, end: 20200107
  28. TYKERB [Suspect]
     Active Substance: LAPATINIB DITOSYLATE
     Dosage: 1000 MG, QD
     Route: 048
     Dates: start: 20200108, end: 20200421
  29. PERJETA [Suspect]
     Active Substance: PERTUZUMAB
     Indication: Breast cancer metastatic
     Dosage: MOST RECENT DOSE PRIOR TO THE EVENT WORSENING OF BRAIN METASTASES: 17/MAR/2017 / MOST RECENT DOSE PR
     Route: 042
     Dates: start: 20170224, end: 20170224
  30. PERJETA [Suspect]
     Active Substance: PERTUZUMAB
     Dosage: MILIGRAMS OTHER FREQUENCY VARIED OVER TIME(FROM 3 WEEKS TO 24DAYS)
     Route: 042
     Dates: start: 20170317, end: 20190213
  31. PERJETA [Suspect]
     Active Substance: PERTUZUMAB
     Dosage: 840 MG, EVERY 3 WEEKS
     Route: 042
     Dates: start: 20200422, end: 20200615
  32. PERJETA [Suspect]
     Active Substance: PERTUZUMAB
     Dosage: 840 MG, EVERY 3 WEEKS
     Route: 042
     Dates: start: 20210317, end: 20210428
  33. TUCATINIB [Suspect]
     Active Substance: TUCATINIB
     Indication: HER2 positive breast cancer
     Dosage: 300 MG, EVERY 0.5 DAY
     Route: 048
     Dates: start: 20201230, end: 20210210
  34. DENOSUMAB [Suspect]
     Active Substance: DENOSUMAB
     Indication: Breast cancer
     Dosage: 120 MG, EVERY 4 WEEKS
     Route: 042
     Dates: start: 20201230
  35. BLEOMYCIN [Suspect]
     Active Substance: BLEOMYCIN SULFATE
     Indication: Breast cancer metastatic
     Dosage: 26.85 MG, EVERY DAY (1 NUMBER OF CYCLE PER REGIMEN) / DRUG WAS DISCONTINUED AS PLANNED NUMBER OF CYC
     Route: 042
     Dates: start: 20200519, end: 20200519
  36. BLEOMYCIN [Suspect]
     Active Substance: BLEOMYCIN SULFATE
     Dosage: 1 DF, EVERY DAY (1 NUMBER OF CYCLE PER REGIMEN) / DRUG WAS DISCONTINUED AS PLANNED NUMBER OF CYCLES
     Route: 042
     Dates: start: 20210105, end: 20210105
  37. FAM-TRASTUZUMAB DERUXTECAN-NXKI [Suspect]
     Active Substance: FAM-TRASTUZUMAB DERUXTECAN-NXKI
     Indication: Breast cancer
     Route: 058
  38. EDOXABAN TOSYLATE [Concomitant]
     Active Substance: EDOXABAN TOSYLATE
     Dosage: ONGOING = CHECKED
     Dates: start: 20200613
  39. EDOXABAN TOSYLATE [Concomitant]
     Active Substance: EDOXABAN TOSYLATE
     Dosage: UNK
     Dates: start: 20191120, end: 20200608
  40. VITAMINS WITH MINERALS [Concomitant]
     Active Substance: MINERALS\VITAMINS
     Dosage: ONGOING = CHECKED
     Dates: start: 20170203
  41. PASPERTIN [Concomitant]
     Dosage: ONGOING = NOT CHECKED
     Dates: start: 20200506, end: 20201215
  42. EUTHYROX [Concomitant]
     Active Substance: LEVOTHYROXINE SODIUM
     Dosage: ONGOING = CHECKED
     Dates: start: 20170303
  43. FILGRASTIM [Concomitant]
     Active Substance: FILGRASTIM
     Dosage: ONGOING = CHECKED
     Dates: start: 20200701
  44. ZOFRAN [Concomitant]
     Active Substance: ONDANSETRON HYDROCHLORIDE
     Dosage: ONGOING = NOT CHECKED
     Dates: start: 20200506, end: 20201215
  45. XGEVA [Concomitant]
     Active Substance: DENOSUMAB
     Dosage: ONGOING = CHECKED
     Dates: start: 20170202
  46. OLEOVIT-D3 [Concomitant]
     Dosage: ONGOING = CHECKED
     Dates: start: 20170329
  47. PREGABALIN [Concomitant]
     Active Substance: PREGABALIN
     Dosage: ONGOING = CHECKED
     Dates: start: 20190821
  48. ACETAMINOPHEN [Concomitant]
     Active Substance: ACETAMINOPHEN
     Dosage: ONGOING = NOT CHECKED
     Dates: start: 20200506, end: 20201215
  49. DROPERIDOL [Concomitant]
     Active Substance: DROPERIDOL
  50. NOVALGIN (METAMIZOLE SODIUM) [Concomitant]
     Active Substance: METAMIZOLE SODIUM
     Dosage: UNK
     Dates: start: 20170329, end: 20180807
  51. DRONABINOL [Concomitant]
     Active Substance: DRONABINOL
  52. BETAISODONA [Concomitant]
     Active Substance: POVIDONE-IODINE
     Indication: Skin fissures
     Dosage: ONGOING = NOT CHECKED
     Dates: start: 20200430, end: 20200515
  53. TAZOBACTAM [Concomitant]
     Active Substance: TAZOBACTAM
     Indication: Streptococcal sepsis
     Dosage: UNK
     Dates: start: 20200423, end: 20200504
  54. LORAZEPAM [Concomitant]
     Active Substance: LORAZEPAM
  55. SCOTTOPECT [Concomitant]
  56. MORPHINE [Concomitant]
     Active Substance: MORPHINE
  57. RETINOL [Concomitant]
     Active Substance: RETINOL
     Dosage: UNK
     Dates: start: 20170329
  58. VITAMIN C [Concomitant]
     Active Substance: ASCORBIC ACID
  59. ELOMEL [Concomitant]
  60. CITRIC ACID MONOHYDRATE\POTASSIUM BICARBONATE\POTASSIUM CITRATE [Concomitant]
     Active Substance: CITRIC ACID MONOHYDRATE\POTASSIUM BICARBONATE\POTASSIUM CITRATE
     Dosage: UNK
     Dates: start: 20200427, end: 20200428
  61. NERIFORTE [Concomitant]
     Indication: Skin fissures
     Dosage: UNK
     Dates: start: 20200430, end: 20200515
  62. DEXAMETHASONE [Concomitant]
     Active Substance: DEXAMETHASONE
     Indication: Brain oedema
     Dosage: UNK
     Dates: start: 20171004, end: 20171006
  63. DEXAMETHASONE [Concomitant]
     Active Substance: DEXAMETHASONE
     Dosage: ONGOING = NOT CHECKED
     Dates: start: 20171007, end: 20171008
  64. DEXAMETHASONE [Concomitant]
     Active Substance: DEXAMETHASONE
     Dosage: UNK
     Dates: start: 20200422, end: 20200505
  65. LEUKICHTAN [COD-LIVER OIL;ICHTHAMMOL] [Concomitant]
     Dosage: UNK
     Dates: start: 20200430, end: 20200515
  66. PANTOPRAZOLE [Concomitant]
     Active Substance: PANTOPRAZOLE
     Dosage: UNK
     Dates: start: 20200506, end: 20200519
  67. PANTOPRAZOLE [Concomitant]
     Active Substance: PANTOPRAZOLE
     Dosage: UNK
     Dates: start: 20170722, end: 20180327
  68. ONDANSETRON [Concomitant]
     Active Substance: ONDANSETRON
  69. PARACODIN [DIHYDROCODEINE] [Concomitant]
  70. LOVENOX [Concomitant]
     Active Substance: ENOXAPARIN SODIUM
     Dosage: UNK
     Dates: start: 20170224, end: 20171130
  71. SILICON [Concomitant]
     Active Substance: SILICON
     Indication: Skin fissures
     Dosage: ONGOING = NOT CHECKED
     Dates: start: 20200521, end: 20200602
  72. BUTYLSCOPOLAMINE BROMIDE [Concomitant]
     Active Substance: BUTYLSCOPOLAMINE BROMIDE
  73. LEVOFLOXACIN [Concomitant]
     Active Substance: LEVOFLOXACIN
     Dosage: UNK
     Dates: start: 20200506, end: 20200512
  74. HALSET [CETYLPYRIDINIUM CHLORIDE] [Concomitant]
  75. FENTANYL [Concomitant]
     Active Substance: FENTANYL\FENTANYL CITRATE
     Dosage: UNK
     Dates: start: 20200515
  76. FENTANYL [Concomitant]
     Active Substance: FENTANYL\FENTANYL CITRATE
     Dosage: UNK
     Dates: start: 20200515
  77. ZIEXTENZO [Concomitant]
     Active Substance: PEGFILGRASTIM-BMEZ
  78. EMEND [Concomitant]
     Active Substance: APREPITANT
     Dosage: UNK
     Dates: start: 20200428, end: 20200430
  79. OLIVE OIL [Concomitant]
     Active Substance: OLIVE OIL
     Indication: Paronychia
     Dosage: UNK
     Dates: start: 20191002, end: 20200512
  80. KCL [Concomitant]
     Active Substance: POTASSIUM CHLORIDE
     Dosage: UNK
     Dates: start: 20170429
  81. CARBOXYMETHYLCELLULOSE SODIUM [Concomitant]
     Active Substance: CARBOXYMETHYLCELLULOSE SODIUM
  82. PONVERIDOL [Concomitant]
  83. POLYETHYLENE GLYCOL 3350\POTASSIUM CHLORIDE\SODIUM BICARBONATE\SODIUM [Concomitant]
     Active Substance: POLYETHYLENE GLYCOL 3350\POTASSIUM CHLORIDE\SODIUM BICARBONATE\SODIUM CHLORIDE
  84. FUROSEMIDE [Concomitant]
     Active Substance: FUROSEMIDE
     Dosage: ONGOING = NOT CHECKED
     Dates: start: 20170810, end: 20171213
  85. FUROSEMIDE [Concomitant]
     Active Substance: FUROSEMIDE
     Dosage: UNK
     Dates: start: 20170810
  86. LORAZEPAM [Concomitant]
     Active Substance: LORAZEPAM
  87. AMOXICILLIN\CLAVULANATE POTASSIUM [Concomitant]
     Active Substance: AMOXICILLIN\CLAVULANATE POTASSIUM
  88. TRAZODONE HYDROCHLORIDE [Concomitant]
     Active Substance: TRAZODONE HYDROCHLORIDE
  89. SODIUM CHLORIDE [Concomitant]
     Active Substance: SODIUM CHLORIDE
  90. DIPRODERM [BETAMETHASONE DIPROPIONATE] [Concomitant]
  91. TRIMETHOPRIM [Concomitant]
     Active Substance: TRIMETHOPRIM
  92. ALPRAZOLAM [Concomitant]
     Active Substance: ALPRAZOLAM
  93. LASIX [Concomitant]
     Active Substance: FUROSEMIDE
  94. ONDANSETRON HYDROCHLORIDE [Concomitant]
     Active Substance: ONDANSETRON HYDROCHLORIDE
  95. XICLAV [AMOXICILLIN TRIHYDRATE;CLAVULANATE POTASSIUM] [Concomitant]

REACTIONS (9)
  - Brain oedema [Not Recovered/Not Resolved]
  - Streptococcal sepsis [Recovered/Resolved]
  - Vascular device infection [Recovered/Resolved]
  - Pseudomonal sepsis [Recovered/Resolved]
  - Fatigue [Not Recovered/Not Resolved]
  - Pleural effusion [Recovered/Resolved]
  - Varicose vein [Not Recovered/Not Resolved]
  - Intentional product use issue [Unknown]
  - Intentional product use issue [Unknown]

NARRATIVE: CASE EVENT DATE: 20200415
